FAERS Safety Report 7545544-9 (Version None)
Quarter: 2011Q2

REPORT INFORMATION
  Report Type: 
  Country: None (occurrence: None)
  Receive Date: 20110614
  Receipt Date: 20110613
  Transmission Date: 20111010
  Serious: Yes (Hospitalization)
  Sender: FDA-Public Use
  Company Number: US-JNJFOC-20091107583

PATIENT
  Sex: Female
  Weight: 90.72 kg

DRUGS (3)
  1. NORVIR [Concomitant]
     Indication: HIV INFECTION
     Route: 048
     Dates: start: 20091013, end: 20091109
  2. PREZISTA [Suspect]
     Indication: HIV INFECTION
     Route: 065
     Dates: start: 20091013, end: 20091109
  3. COMBIVIR [Concomitant]
     Indication: HIV INFECTION
     Dates: start: 20091013, end: 20091109

REACTIONS (2)
  - IMMINENT ABORTION [None]
  - DRUG EXPOSURE DURING PREGNANCY [None]
